FAERS Safety Report 21973543 (Version 1)
Quarter: 2023Q1

REPORT INFORMATION
  Report Type: Spontaneous
  Country: BR (occurrence: BR)
  Receive Date: 20230209
  Receipt Date: 20230209
  Transmission Date: 20230418
  Serious: Yes (Other)
  Sender: FDA-Public Use
  Company Number: None

PATIENT
  Age: 32 Year
  Sex: Male

DRUGS (5)
  1. PREDNISONE [Suspect]
     Active Substance: PREDNISONE
     Indication: Lepromatous leprosy
  2. PREDNISONE [Suspect]
     Active Substance: PREDNISONE
  3. THALIDOMIDE [Concomitant]
     Active Substance: THALIDOMIDE
     Indication: Lepromatous leprosy
  4. THALIDOMIDE [Concomitant]
     Active Substance: THALIDOMIDE
  5. ADALIMUMAB [Concomitant]
     Active Substance: ADALIMUMAB
     Indication: Lepromatous leprosy
     Route: 058

REACTIONS (3)
  - Sepsis [Unknown]
  - Diabetes mellitus [Unknown]
  - Obesity [Unknown]
